FAERS Safety Report 16563794 (Version 2)
Quarter: 2019Q3

REPORT INFORMATION
  Report Type: Spontaneous
  Country: US (occurrence: US)
  Receive Date: 20190712
  Receipt Date: 20190712
  Transmission Date: 20191004
  Serious: No
  Sender: FDA-Public Use
  Company Number: US-CIPLA LTD.-2019US03549

PATIENT

DRUGS (1)
  1. TESTOSTERONE. [Suspect]
     Active Substance: TESTOSTERONE
     Indication: SUPPLEMENTATION THERAPY
     Dosage: 1.5 MILLILITER, 2 WEEKS
     Route: 065
     Dates: start: 201812

REACTIONS (4)
  - Asthenia [Unknown]
  - Drug ineffective [Unknown]
  - Product deposit [Unknown]
  - Recalled product [Unknown]
